FAERS Safety Report 8037141-6 (Version None)
Quarter: 2012Q1

REPORT INFORMATION
  Report Type: 
  Country: None (occurrence: None)
  Receive Date: 20120111
  Receipt Date: 20120110
  Transmission Date: 20120608
  Serious: Yes (Other)
  Sender: FDA-Public Use
  Company Number: US-PFIZER INC-2011171573

PATIENT
  Sex: Male

DRUGS (6)
  1. NEURONTIN [Suspect]
     Indication: FIBROMYALGIA
     Dosage: 300 MG, 3X/DAY
     Route: 048
     Dates: start: 20110624, end: 20110728
  2. LYRICA [Suspect]
     Indication: PAIN
  3. NEURONTIN [Suspect]
     Indication: ABDOMINAL PAIN UPPER
  4. LYRICA [Suspect]
     Indication: FIBROMYALGIA
     Dosage: 100 MG, 2X/DAY
     Route: 048
     Dates: start: 20100108, end: 20110101
  5. LYRICA [Suspect]
     Indication: ABDOMINAL PAIN UPPER
  6. NEURONTIN [Suspect]
     Indication: PAIN

REACTIONS (6)
  - CATARACT OPERATION [None]
  - VISUAL ACUITY REDUCED [None]
  - VISION BLURRED [None]
  - EYE PAIN [None]
  - INTRAOCULAR PRESSURE INCREASED [None]
  - FACE OEDEMA [None]
